FAERS Safety Report 12122373 (Version 4)
Quarter: 2016Q2

REPORT INFORMATION
  Report Type: Spontaneous
  Country: FI (occurrence: FI)
  Receive Date: 20160226
  Receipt Date: 20160629
  Transmission Date: 20160815
  Serious: Yes (Hospitalization, Other)
  Sender: FDA-Public Use
  Company Number: FI-ASTRAZENECA-2016SE18586

PATIENT
  Age: 67 Year
  Sex: Male
  Weight: 106 kg

DRUGS (9)
  1. GLARGININ INSULIN [Concomitant]
     Indication: DIABETES MELLITUS
     Dosage: 60.0IU UNKNOWN
  2. BYDUREON [Suspect]
     Active Substance: EXENATIDE
     Indication: BLOOD GLUCOSE ABNORMAL
     Route: 065
     Dates: start: 20151127, end: 20160219
  3. METFORMIN [Concomitant]
     Active Substance: METFORMIN HYDROCHLORIDE
  4. GLARGININ INSULIN [Concomitant]
     Indication: DIABETES MELLITUS
     Dosage: 150 IU BEFORE BYDUREON
  5. BYDUREON [Suspect]
     Active Substance: EXENATIDE
     Indication: BLOOD INSULIN INCREASED
     Route: 065
     Dates: start: 20151127, end: 20160219
  6. GLARGININ INSULIN [Concomitant]
     Indication: DIABETES MELLITUS
     Dosage: 80.0IU UNKNOWN
  7. ASPARTINSULIN [Concomitant]
  8. BYDUREON [Suspect]
     Active Substance: EXENATIDE
     Indication: OVERWEIGHT
     Route: 065
     Dates: start: 20151127, end: 20160219
  9. ASPARTINSULIN [Concomitant]

REACTIONS (6)
  - C-reactive protein increased [Unknown]
  - Hypotension [Unknown]
  - Weight decreased [Unknown]
  - Intestinal obstruction [Recovered/Resolved]
  - Diarrhoea [Unknown]
  - Obstruction gastric [Recovered/Resolved]

NARRATIVE: CASE EVENT DATE: 201601
